FAERS Safety Report 5210320-9 (Version None)
Quarter: 2007Q1

REPORT INFORMATION
  Report Type: 
  Country: None (occurrence: None)
  Receive Date: 20070111
  Receipt Date: 20061229
  Transmission Date: 20070707
  Serious: Yes (Hospitalization, Other)
  Sender: FDA-Public Use
  Company Number: 863#1#2006-00018

PATIENT
  Age: 49 Year
  Sex: Female

DRUGS (1)
  1. IDROLAX (MACROGOL) [Suspect]
     Dosage: 10 G (10 G 1 IN 1 DAY (S))
     Route: 048

REACTIONS (5)
  - HYPOKALAEMIA [None]
  - LOSS OF CONSCIOUSNESS [None]
  - MALAISE [None]
  - PARAESTHESIA [None]
  - POST PROCEDURAL HAEMORRHAGE [None]
